FAERS Safety Report 6682712-2 (Version None)
Quarter: 2010Q2

REPORT INFORMATION
  Report Type: 
  Country: None (occurrence: None)
  Receive Date: 20100415
  Receipt Date: 20100409
  Transmission Date: 20101027
  Serious: Yes (Other)
  Sender: FDA-Public Use
  Company Number: US-SANOFI-AVENTIS-2010SA020865

PATIENT
  Age: 71 Year
  Sex: Female

DRUGS (6)
  1. MULTAQ [Suspect]
     Indication: ATRIAL FIBRILLATION
     Route: 048
     Dates: start: 20100407
  2. REMERON [Concomitant]
     Indication: SLEEP DISORDER
     Route: 065
  3. PREVACID [Concomitant]
     Indication: GASTRIC DISORDER
  4. MAXAIR [Concomitant]
  5. VITAMINS [Concomitant]
  6. CALCIUM [Concomitant]

REACTIONS (1)
  - ATRIAL FIBRILLATION [None]
